FAERS Safety Report 9102351 (Version 1)
Quarter: 2013Q1

REPORT INFORMATION
  Report Type: Spontaneous
  Country: US (occurrence: US)
  Receive Date: 20130218
  Receipt Date: 20130218
  Transmission Date: 20140127
  Serious: No
  Sender: FDA-Public Use
  Company Number: US-BIOGENIDEC-2013BI012741

PATIENT
  Age: 43 None
  Sex: Female

DRUGS (1)
  1. TYSABRI [Suspect]
     Indication: MULTIPLE SCLEROSIS
     Route: 042
     Dates: start: 20100408

REACTIONS (9)
  - Muscle spasms [Recovered/Resolved]
  - Musculoskeletal disorder [Recovered/Resolved]
  - Psychomotor skills impaired [Recovered/Resolved]
  - Gait disturbance [Recovered/Resolved]
  - Visual impairment [Recovered/Resolved with Sequelae]
  - Balance disorder [Recovered/Resolved]
  - Multiple sclerosis relapse [Recovered/Resolved]
  - Drug effect decreased [Recovered/Resolved]
  - Malaise [Not Recovered/Not Resolved]
